FAERS Safety Report 6931772-X (Version None)
Quarter: 2010Q3

REPORT INFORMATION
  Report Type: 
  Country: None (occurrence: None)
  Receive Date: 20100819
  Receipt Date: 20100813
  Transmission Date: 20110219
  Serious: Yes (Death)
  Sender: FDA-Public Use
  Company Number: US-CELGENEUS-163-21880-10072132

PATIENT
  Sex: Female

DRUGS (3)
  1. REVLIMID [Suspect]
     Indication: MULTIPLE MYELOMA
     Route: 048
     Dates: start: 20060701
  2. REVLIMID [Suspect]
     Dosage: 25-15-25 MG
     Route: 048
     Dates: start: 20090201
  3. REVLIMID [Suspect]
     Route: 048
     Dates: start: 20100518, end: 20100721

REACTIONS (2)
  - DEATH [None]
  - DRUG INEFFECTIVE [None]
